FAERS Safety Report 4872266-5 (Version None)
Quarter: 2006Q1

REPORT INFORMATION
  Report Type: 
  Country: None (occurrence: None)
  Receive Date: 20060104
  Receipt Date: 20051214
  Transmission Date: 20060701
  Serious: Yes (Death)
  Sender: FDA-Public Use
  Company Number: JP-NOVOPROD-249388

PATIENT
  Age: 72 Year
  Sex: Male
  Weight: 52 kg

DRUGS (5)
  1. NOVOLOG [Suspect]
     Indication: INSULIN-REQUIRING TYPE II DIABETES MELLITUS
     Dosage: 48 IU, QD
     Route: 058
     Dates: start: 20030910
  2. LIVACT [Concomitant]
     Indication: BILIARY CIRRHOSIS
     Dosage: 12.45 G, UNK
     Route: 048
     Dates: start: 20030326
  3. URSO [Concomitant]
     Indication: BILIARY CIRRHOSIS PRIMARY
     Dosage: 450 MG, UNK
     Route: 048
     Dates: start: 20030326
  4. GASTER [Concomitant]
     Indication: GASTRITIS
     Dosage: 20 MG, UNK
     Route: 048
     Dates: start: 20030326
  5. TORSEMIDE [Concomitant]
     Indication: BILIARY CIRRHOSIS PRIMARY
     Dosage: 4 MG, QD
     Route: 048
     Dates: start: 20030326

REACTIONS (2)
  - DEATH [None]
  - DIABETES MELLITUS INADEQUATE CONTROL [None]
